FAERS Safety Report 9822854 (Version 1)
Quarter: 2014Q1

REPORT INFORMATION
  Report Type: Spontaneous
  Country: GB (occurrence: GB)
  Receive Date: 20140116
  Receipt Date: 20140116
  Transmission Date: 20141002
  Serious: Yes (Other)
  Sender: FDA-Public Use
  Company Number: GB-WATSON-2014-00059

PATIENT
  Age: 74 Year
  Sex: Female

DRUGS (1)
  1. TRIMETHOPRIM (UNKNOWN) [Suspect]
     Indication: URINARY TRACT INFECTION
     Dosage: 200 MG, BID
     Route: 065
     Dates: start: 20131117

REACTIONS (1)
  - Chromaturia [Unknown]
